FAERS Safety Report 9342751 (Version 3)
Quarter: 2013Q3

REPORT INFORMATION
  Report Type: Spontaneous
  Country: US (occurrence: None)
  Receive Date: 20130524
  Receipt Date: 20130815
  Transmission Date: 20140515
  Serious: Yes (Hospitalization, Other)
  Sender: FDA-Public Use
  Company Number: ADR-2012-01805

PATIENT
  Age: 44 Year
  Sex: Female

DRUGS (2)
  1. LIORESAL INTRATHECAL (BACLOFEN INJECTION) [Suspect]
     Indication: MUSCLE SPASTICITY
  2. STEROIDS (UNSPECIFIED) [Concomitant]

REACTIONS (15)
  - Underdose [None]
  - Headache [None]
  - Pain [None]
  - Gait disturbance [None]
  - Fall [None]
  - Muscle spasticity [None]
  - Musculoskeletal stiffness [None]
  - Urinary tract infection [None]
  - Migraine [None]
  - Drug withdrawal syndrome [None]
  - Paraesthesia [None]
  - Muscle spasticity [None]
  - Abasia [None]
  - Musculoskeletal stiffness [None]
  - Urinary tract infection [None]
